FAERS Safety Report 9286069 (Version 2)
Quarter: 2013Q2

REPORT INFORMATION
  Report Type: Spontaneous
  Country: US (occurrence: None)
  Receive Date: 20130507
  Receipt Date: 20130604
  Transmission Date: 20140414
  Serious: Yes (Disabling, Other)
  Sender: FDA-Public Use
  Company Number: 1305-568

PATIENT
  Age: 84 Year
  Sex: Male

DRUGS (5)
  1. EYLEA [Suspect]
     Indication: AGE-RELATED MACULAR DEGENERATION
     Dosage: 2 MG, 1 IN 5 WK, INTRAVITREAL
     Dates: start: 20120201, end: 20130424
  2. TAMSULOSIN (TAMSULOSIN) [Concomitant]
  3. ATIVAN (LORAZEPAM) [Concomitant]
  4. TRAMADOL (TRAMADOL) [Concomitant]
  5. ZANTAC (RANITIDINE HYDROCHLORIDE) [Concomitant]

REACTIONS (3)
  - Uveitis [None]
  - Vitreous floaters [None]
  - Blindness [None]
